FAERS Safety Report 6341772-9 (Version None)
Quarter: 2009Q3

REPORT INFORMATION
  Report Type: 
  Country: None (occurrence: None)
  Receive Date: 20090901
  Receipt Date: 20090901
  Transmission Date: 20100115
  Serious: Yes (Life-Threatening, Hospitalization, Other)
  Sender: FDA-Public Use
  Company Number: None

PATIENT
  Sex: Female
  Weight: 99.7913 kg

DRUGS (2)
  1. GEODON [Suspect]
     Dosage: 80MG BID PO
     Route: 048
     Dates: start: 20040705, end: 20080306
  2. CYMBALTA [Suspect]
     Dosage: 120MG BID PO
     Route: 048
     Dates: start: 20050214, end: 20080306

REACTIONS (9)
  - BLEPHAROSPASM [None]
  - BLINDNESS [None]
  - DRUG DISPENSING ERROR [None]
  - DYSPHAGIA [None]
  - DYSPNOEA [None]
  - INCORRECT DOSE ADMINISTERED [None]
  - MEDICATION ERROR [None]
  - SPEECH DISORDER [None]
  - TARDIVE DYSKINESIA [None]
